FAERS Safety Report 8223021-X (Version None)
Quarter: 2012Q1

REPORT INFORMATION
  Report Type: 
  Country: None (occurrence: None)
  Receive Date: 20120320
  Receipt Date: 20120315
  Transmission Date: 20120608
  Serious: Yes (Death, Other)
  Sender: FDA-Public Use
  Company Number: US-ASTRAZENECA-2012SE18104

PATIENT
  Age: 92 Year
  Sex: Male
  Weight: 72.6 kg

DRUGS (1)
  1. RHINOCORT [Suspect]
     Route: 045

REACTIONS (4)
  - COLON CANCER [None]
  - RENAL FAILURE [None]
  - CIRCUMSTANCE OR INFORMATION CAPABLE OF LEADING TO MEDICATION ERROR [None]
  - PAIN [None]
